FAERS Safety Report 4337737-9 (Version None)
Quarter: 2004Q2

REPORT INFORMATION
  Report Type: 
  Country: None (occurrence: None)
  Receive Date: 20040412
  Receipt Date: 20040405
  Transmission Date: 20050107
  Serious: Yes (Hospitalization)
  Sender: FDA-Public Use
  Company Number: WAES 0208USA00138

PATIENT
  Age: 78 Year
  Sex: Male

DRUGS (12)
  1. FOSAMAX [Suspect]
     Indication: SENILE OSTEOPOROSIS
     Dosage: 5 MG/DAILY, PO
     Route: 048
     Dates: start: 20020714, end: 20020714
  2. AMOBAN [Concomitant]
  3. CALCICHEW D3 [Concomitant]
  4. DOGMATYL [Concomitant]
  5. GANATON [Concomitant]
  6. NICODEL [Concomitant]
  7. TAGAMET [Concomitant]
  8. DEXTROSE [Concomitant]
  9. LIDOCAINE HYDROCHLORIDE [Concomitant]
  10. NEUROTROPIN [Concomitant]
  11. TOLOBUTEROL HCL [Concomitant]
  12. VITAMIN B COMPLEX CAP [Concomitant]

REACTIONS (3)
  - BRONCHITIS ACUTE [None]
  - GLUCOSE URINE PRESENT [None]
  - IRRITABLE BOWEL SYNDROME [None]
